FAERS Safety Report 4548407-6 (Version None)
Quarter: 2004Q4

REPORT INFORMATION
  Report Type: 
  Country: None (occurrence: None)
  Receive Date: 20041227
  Receipt Date: 20041004
  Transmission Date: 20050328
  Serious: No
  Sender: FDA-Public Use
  Company Number: 04P-163-0276555-00

PATIENT
  Age: 48 Year
  Sex: Female
  Weight: 92.5338 kg

DRUGS (10)
  1. HUMIRA [Suspect]
     Indication: RHEUMATOID ARTHRITIS
     Dosage: 40 MG, 1 IN 10 D, SUBCUTANEOUS; SEE IMAGE
     Route: 058
     Dates: start: 20030101, end: 20040206
  2. HUMIRA [Suspect]
     Indication: RHEUMATOID ARTHRITIS
     Dosage: 40 MG, 1 IN 10 D, SUBCUTANEOUS; SEE IMAGE
     Route: 058
     Dates: start: 20040206, end: 20040901
  3. METHOTREXATE SODIUM [Concomitant]
  4. HYDROXYCHLOROQUINE PHOSPHATE [Concomitant]
  5. FOLIC ACID [Concomitant]
  6. TRAMADOL HCL [Concomitant]
  7. NORTRIPTYLINE HCL [Concomitant]
  8. BUPROPION HYDROCHLORIDE [Concomitant]
  9. RISPERIDONE [Concomitant]
  10. GABAPENTIN [Concomitant]

REACTIONS (2)
  - ABSCESS [None]
  - CELLULITIS [None]
